FAERS Safety Report 5224949-5 (Version None)
Quarter: 2007Q1

REPORT INFORMATION
  Report Type: 
  Country: None (occurrence: None)
  Receive Date: 20070126
  Receipt Date: 20070119
  Transmission Date: 20070707
  Serious: Yes (Life-Threatening, Other)
  Sender: FDA-Public Use
  Company Number: HQWYE482327NOV06

PATIENT
  Age: 85 Year
  Sex: Male

DRUGS (12)
  1. AMIODARONE HCL [Suspect]
     Indication: ATRIAL FIBRILLATION
     Dosage: 100 MG 2X PER 1 DAY
     Route: 048
     Dates: start: 20061017, end: 20061025
  2. AMIODARONE HCL [Suspect]
     Indication: CARDIAC FAILURE
     Dosage: 100 MG 2X PER 1 DAY
     Route: 048
     Dates: start: 20061017, end: 20061025
  3. WARFARIN SODIUM [Concomitant]
  4. DIGOXIN [Concomitant]
  5. LASIX [Concomitant]
  6. OMEPRAL (OMEPRAZOLE) [Concomitant]
  7. PURSENNID (SENNA LEAF) [Concomitant]
  8. MAGNESIUM OXIDE (MAGNESIUM OXIDE) [Concomitant]
  9. BUFFERIN [Concomitant]
  10. ALLOPURINOL [Concomitant]
  11. PROMAC (POLAPREZINC) [Concomitant]
  12. VERAPAMIL HYDROCHLORIDE [Concomitant]

REACTIONS (1)
  - GRANULOCYTOPENIA [None]
